FAERS Safety Report 6773880-2 (Version None)
Quarter: 2010Q2

REPORT INFORMATION
  Report Type: 
  Country: None (occurrence: None)
  Receive Date: 20100617
  Receipt Date: 20100609
  Transmission Date: 20101027
  Serious: No
  Sender: FDA-Public Use
  Company Number: US-BIOGENIDEC-2010BI019263

PATIENT
  Sex: Female

DRUGS (2)
  1. AVONEX [Suspect]
     Indication: MULTIPLE SCLEROSIS
     Route: 030
     Dates: start: 20031120, end: 20051120
  2. AVONEX [Suspect]
     Route: 030
     Dates: start: 20080516

REACTIONS (5)
  - BALANCE DISORDER [None]
  - CONTUSION [None]
  - FEAR [None]
  - GAIT DISTURBANCE [None]
  - INJECTION SITE HAEMATOMA [None]
